FAERS Safety Report 12154852 (Version 2)
Quarter: 2016Q1

REPORT INFORMATION
  Report Type: Spontaneous
  Country: FR (occurrence: FR)
  Receive Date: 20160307
  Receipt Date: 20160316
  Transmission Date: 20160526
  Serious: Yes (Life-Threatening, Hospitalization)
  Sender: FDA-Public Use
  Company Number: FR-NOVOPROD-482053

PATIENT
  Age: 46 Year
  Sex: Female

DRUGS (2)
  1. NOVORAPID [Suspect]
     Active Substance: INSULIN ASPART
     Indication: PRODUCT USED FOR UNKNOWN INDICATION
     Dosage: SUPPOSED POSOLOGY INJECTED: 2 PENS THAT MEANS 800 IU
     Route: 065
     Dates: start: 20160131
  2. LANTUS [Suspect]
     Active Substance: INSULIN GLARGINE
     Indication: PRODUCT USED FOR UNKNOWN INDICATION
     Dosage: SUPPOSED POSOLOGY INJECTED : ONE PEN
     Route: 065
     Dates: start: 20160131

REACTIONS (4)
  - Intentional overdose [Unknown]
  - Hypoglycaemic coma [Recovered/Resolved]
  - Hypothermia [Recovered/Resolved]
  - Hypotension [Recovered/Resolved]

NARRATIVE: CASE EVENT DATE: 20160131
